FAERS Safety Report 4458045-1 (Version None)
Quarter: 2004Q3

REPORT INFORMATION
  Report Type: 
  Country: None (occurrence: None)
  Receive Date: 20040924
  Receipt Date: 20040914
  Transmission Date: 20050211
  Serious: Yes (Hospitalization)
  Sender: FDA-Public Use
  Company Number: FR-JNJFOC-20040704267

PATIENT
  Sex: Male
  Weight: 28 kg

DRUGS (1)
  1. CONCERTA [Suspect]
     Route: 049

REACTIONS (2)
  - HEADACHE [None]
  - PYREXIA [None]
